FAERS Safety Report 9744019 (Version 1)
Quarter: 2013Q4

REPORT INFORMATION
  Report Type: Spontaneous
  Country: US (occurrence: US)
  Receive Date: 20131210
  Receipt Date: 20131210
  Transmission Date: 20140711
  Serious: Yes (Hospitalization)
  Sender: FDA-Public Use
  Company Number: US-GLAXOSMITHKLINE-A1051849A

PATIENT
  Age: 22 Year
  Sex: Female

DRUGS (7)
  1. LAMICTAL XR [Suspect]
     Indication: EPILEPSY
     Dosage: 500MG PER DAY
     Route: 048
     Dates: end: 201211
  2. LAMOTRIGINE [Suspect]
     Indication: EPILEPSY
     Route: 065
     Dates: start: 201206, end: 201211
  3. KEPPRA [Suspect]
     Indication: PRODUCT USED FOR UNKNOWN INDICATION
     Route: 065
  4. VIMPAT [Suspect]
     Indication: PRODUCT USED FOR UNKNOWN INDICATION
     Route: 065
  5. CLONAZEPAM [Suspect]
     Indication: PRODUCT USED FOR UNKNOWN INDICATION
     Route: 065
  6. PRENATAL VITAMINS [Concomitant]
  7. FOLIC ACID [Concomitant]

REACTIONS (8)
  - Brain operation [Recovered/Resolved]
  - Convulsion [Recovered/Resolved]
  - Insomnia [Recovered/Resolved]
  - Drug ineffective [Recovered/Resolved]
  - Constipation [Recovered/Resolved]
  - Fall [Recovered/Resolved]
  - Concussion [Recovered/Resolved]
  - Head injury [Recovered/Resolved]
